FAERS Safety Report 9708608 (Version 3)
Quarter: 2013Q4

REPORT INFORMATION
  Report Type: Spontaneous
  Country: US (occurrence: US)
  Receive Date: 20131125
  Receipt Date: 20131230
  Transmission Date: 20140711
  Serious: Yes (Death)
  Sender: FDA-Public Use
  Company Number: US-PFIZER INC-2013334193

PATIENT
  Age: 57 Year
  Sex: Female

DRUGS (1)
  1. CAMPTOSAR [Suspect]
     Indication: COLON CANCER METASTATIC
     Dosage: 360 MG, WEEKLY (ONCE A WEEK)
     Dates: start: 20130826

REACTIONS (1)
  - Pulmonary embolism [Fatal]
